FAERS Safety Report 5711751-0 (Version None)
Quarter: 2008Q2

REPORT INFORMATION
  Report Type: 
  Country: None (occurrence: None)
  Receive Date: 20080421
  Receipt Date: 20080415
  Transmission Date: 20081010
  Serious: Yes (Death, Other)
  Sender: FDA-Public Use
  Company Number: PHHY2008CA00911

PATIENT
  Age: 47 Year
  Sex: Male

DRUGS (4)
  1. CLOZARIL [Suspect]
     Indication: SCHIZOPHRENIA
     Dosage: 100 MG, TID
     Route: 048
     Dates: start: 20000215, end: 20080121
  2. ELAVIL [Concomitant]
     Dosage: 50 MG, QHS
  3. CEPHALEXIN [Concomitant]
     Dosage: 500 MG, QID
     Dates: start: 20080103
  4. LORAZEPAM [Concomitant]
     Dosage: UNK, TID

REACTIONS (2)
  - DEATH [None]
  - ORCHITIS NONINFECTIVE [None]
